FAERS Safety Report 21571115 (Version 1)
Quarter: 2022Q4

REPORT INFORMATION
  Report Type: Spontaneous
  Country: US (occurrence: US)
  Receive Date: 20221109
  Receipt Date: 20221109
  Transmission Date: 20230112
  Serious: No
  Sender: FDA-Public Use
  Company Number: US-ViiV Healthcare Limited-87460

PATIENT
  Sex: Male

DRUGS (3)
  1. CABENUVA [Suspect]
     Active Substance: CABOTEGRAVIR\RILPIVIRINE
     Indication: Product used for unknown indication
     Dosage: UNK, FIRST DOSE OF 600/900 MG
     Dates: start: 20220630
  2. CABENUVA [Suspect]
     Active Substance: CABOTEGRAVIR\RILPIVIRINE
     Dosage: UNK,SECOND DOSE OF 400/600 MG
     Dates: start: 20220729
  3. CABENUVA [Suspect]
     Active Substance: CABOTEGRAVIR\RILPIVIRINE
     Dosage: UNK, THIRD DOSE OF 600/900 MG
     Dates: start: 20220830

REACTIONS (2)
  - Incorrect dosage administered [Unknown]
  - Inappropriate schedule of product administration [Unknown]
